FAERS Safety Report 4645859-8 (Version None)
Quarter: 2005Q2

REPORT INFORMATION
  Report Type: 
  Country: None (occurrence: None)
  Receive Date: 20050425
  Receipt Date: 20050413
  Transmission Date: 20051028
  Serious: Yes (Hospitalization, Other)
  Sender: FDA-Public Use
  Company Number: HQWYE023014APR05

PATIENT
  Age: 53 Year
  Sex: Male

DRUGS (9)
  1. EFFEXOR XR [Suspect]
     Dosage: 75 MG 1X PER 1 DAY, ORAL
     Route: 048
     Dates: end: 20050101
  2. WELLBUTRIN SR [Suspect]
     Indication: DEPRESSION
     Dosage: 200 MG 2X PER 1 DAY, ORAL
     Route: 048
     Dates: end: 20050101
  3. REMERON [Concomitant]
  4. METFORMIN HCL [Concomitant]
  5. HUMULIN 70/30 [Concomitant]
  6. LESCOL [Concomitant]
  7. LISINOPRIL [Concomitant]
  8. SEROQUEL [Concomitant]
  9. VALPROATE SODIUM [Concomitant]

REACTIONS (3)
  - MOOD ALTERED [None]
  - PSYCHOTIC DISORDER [None]
  - SUICIDE ATTEMPT [None]
